FAERS Safety Report 4768105-3 (Version None)
Quarter: 2005Q3

REPORT INFORMATION
  Report Type: 
  Country: None (occurrence: None)
  Receive Date: 20050912
  Receipt Date: 20050912
  Transmission Date: 20060218
  Serious: Yes (Hospitalization)
  Sender: FDA-Public Use
  Company Number: None

PATIENT
  Age: 37 Year
  Sex: Female
  Weight: 63.9 kg

DRUGS (13)
  1. CAMPATH [Suspect]
     Indication: IMMUNOSUPPRESSION
     Dosage: 30 MG ALC}200
  2. CALCIUM CARBONATE [Concomitant]
  3. MYCELEX [Concomitant]
  4. DAPSONE [Concomitant]
  5. ARANESP [Concomitant]
  6. COZAAR [Concomitant]
  7. MAGNESIUM OXIDE [Concomitant]
  8. CELLCEPT [Concomitant]
  9. PROTONIX [Concomitant]
  10. ACTONEL [Concomitant]
  11. SENN [Concomitant]
  12. VALCYTE [Concomitant]
  13. PERCOCET [Concomitant]

REACTIONS (2)
  - HERNIA REPAIR [None]
  - URETERIC STENOSIS [None]
